FAERS Safety Report 5698253-5 (Version None)
Quarter: 2008Q2

REPORT INFORMATION
  Report Type: 
  Country: None (occurrence: None)
  Receive Date: 20080408
  Receipt Date: 20080327
  Transmission Date: 20081010
  Serious: Yes (Hospitalization)
  Sender: FDA-Public Use
  Company Number: JP-PFIZER INC-2008028276

PATIENT
  Sex: Male
  Weight: 55 kg

DRUGS (3)
  1. FARMORUBICIN [Suspect]
     Indication: METASTASES TO LIVER
     Route: 013
     Dates: start: 20050905, end: 20060616
  2. MITOMYCIN [Suspect]
     Indication: METASTASES TO LIVER
     Route: 013
     Dates: start: 20050905, end: 20060616
  3. SPHEREX [Suspect]
     Indication: METASTASES TO LIVER
     Route: 013
     Dates: start: 20050905, end: 20060616

REACTIONS (1)
  - HEPATIC NECROSIS [None]
